FAERS Safety Report 13791362 (Version 1)
Quarter: 2017Q3

REPORT INFORMATION
  Report Type: Spontaneous
  Country: AT (occurrence: AT)
  Receive Date: 20170725
  Receipt Date: 20170725
  Transmission Date: 20171127
  Serious: Yes (Hospitalization)
  Sender: FDA-Public Use
  Company Number: AT-US WORLDMEDS, LLC-USW201706-000894

PATIENT
  Age: 72 Year
  Sex: Female

DRUGS (10)
  1. ACECOMB [Concomitant]
     Active Substance: HYDROCHLOROTHIAZIDE\LISINOPRIL
  2. NOVALGIN [Concomitant]
     Active Substance: METAMIZOLE SODIUM
  3. NOVALGIN [Concomitant]
     Active Substance: METAMIZOLE SODIUM
  4. MADOPAR [Concomitant]
     Active Substance: BENSERAZIDE HYDROCHLORIDE\LEVODOPA
  5. DAFLON [Concomitant]
     Active Substance: DIOSMIN\HESPERIDIN
  6. THROMBO ASS [Concomitant]
     Active Substance: ASPIRIN
  7. EUTHYROX [Concomitant]
     Active Substance: LEVOTHYROXINE SODIUM
  8. APOMORPHINE HYDROCHLORIDE [Suspect]
     Active Substance: APOMORPHINE HYDROCHLORIDE
     Indication: PARKINSON^S DISEASE
     Route: 058
     Dates: start: 20170530
  9. MADOPAR [Concomitant]
     Active Substance: BENSERAZIDE HYDROCHLORIDE\LEVODOPA
  10. DAFLON [Concomitant]
     Active Substance: DIOSMIN\HESPERIDIN

REACTIONS (3)
  - Injection site induration [Unknown]
  - Thrombosis [Unknown]
  - Injection site erythema [Unknown]

NARRATIVE: CASE EVENT DATE: 201706
